FAERS Safety Report 9774884 (Version 1)
Quarter: 2013Q4

REPORT INFORMATION
  Report Type: Spontaneous
  Country: US (occurrence: US)
  Receive Date: 20131220
  Receipt Date: 20131220
  Transmission Date: 20140711
  Serious: No
  Sender: FDA-Public Use
  Company Number: US-GLAXOSMITHKLINE-A1007329A

PATIENT
  Age: 66 Year
  Sex: Male

DRUGS (6)
  1. AVODART [Suspect]
     Indication: BENIGN PROSTATIC HYPERPLASIA
     Dosage: 1CAP PER DAY
     Route: 048
     Dates: start: 201211, end: 20121221
  2. FLOMAX [Concomitant]
  3. SINGULAIR [Concomitant]
  4. QVAR [Concomitant]
  5. FLONASE [Concomitant]
  6. SYNTHROID [Concomitant]

REACTIONS (6)
  - Myalgia [Unknown]
  - Gait disturbance [Unknown]
  - Erectile dysfunction [Unknown]
  - Libido decreased [Unknown]
  - Retrograde ejaculation [Unknown]
  - Condition aggravated [Unknown]
